FAERS Safety Report 8624336-3 (Version None)
Quarter: 2012Q3

REPORT INFORMATION
  Report Type: 
  Country: None (occurrence: None)
  Receive Date: 20120827
  Receipt Date: 20120821
  Transmission Date: 20120928
  Serious: Yes (Death)
  Sender: FDA-Public Use
  Company Number: US-CELGENEUS-163-21880-12082230

PATIENT
  Sex: Male

DRUGS (22)
  1. REVLIMID [Suspect]
     Indication: MULTIPLE MYELOMA
     Dosage: 25 MILLIGRAM
     Route: 048
     Dates: start: 20090616
  2. GLIPIZIDE [Concomitant]
     Dosage: 2.5 MILLIGRAM
     Route: 065
  3. CACLIUM + D [Concomitant]
     Route: 065
  4. HUMULIN L [Concomitant]
     Dosage: U-100
     Route: 065
  5. LOVAZA [Concomitant]
     Route: 065
  6. REVLIMID [Suspect]
     Dosage: 5 MILLIGRAM
     Route: 048
     Dates: start: 20100201
  7. REVLIMID [Suspect]
     Dates: start: 20100601
  8. FINASTERIDE [Concomitant]
     Dosage: 5 MILLIGRAM
     Route: 065
  9. MULTI-VITAMIN [Concomitant]
     Route: 065
  10. FISH OIL [Concomitant]
     Route: 065
  11. PRILOSEC [Concomitant]
     Dosage: 20 MILLIGRAM
     Route: 065
  12. REVATIO [Concomitant]
     Dosage: 20 MILLIGRAM
     Route: 065
  13. ASPIRIN [Concomitant]
     Dosage: 81 MILLIGRAM
     Route: 065
  14. DECADRON PHOSPHATE [Concomitant]
     Dosage: .5 MILLIGRAM
     Route: 065
  15. MULTIVITAMIN [Concomitant]
     Route: 065
  16. SEPTRA [Concomitant]
     Dosage: 400-80MG
     Route: 065
  17. REVLIMID [Suspect]
     Dosage: 15 MILLIGRAM
     Route: 048
     Dates: start: 20090801
  18. POTASSIUM CHLORIDE ER [Concomitant]
     Dosage: 10 MILLIEQUIVALENTS
     Route: 065
  19. PROCHLORPERAZINE [Concomitant]
     Dosage: 5 MILLIGRAM
     Route: 065
  20. COLACE [Concomitant]
     Dosage: 100 MILLIGRAM
     Route: 065
  21. LANOXIN [Concomitant]
     Dosage: .25 MILLIGRAM
     Route: 065
  22. LASIX [Concomitant]
     Dosage: 20 MILLIGRAM
     Route: 065

REACTIONS (1)
  - DEATH [None]
